FAERS Safety Report 4984789-9 (Version None)
Quarter: 2006Q2

REPORT INFORMATION
  Report Type: 
  Country: None (occurrence: None)
  Receive Date: 20060427
  Receipt Date: 20051207
  Transmission Date: 20061013
  Serious: Yes (Hospitalization)
  Sender: FDA-Public Use
  Company Number: US-MERCK-0512USA01393

PATIENT
  Age: 70 Year
  Sex: Female
  Weight: 77 kg

DRUGS (14)
  1. VIOXX [Suspect]
     Indication: ARTHRITIS
     Route: 048
     Dates: start: 20000101, end: 20040101
  2. VIOXX [Suspect]
     Route: 048
  3. ASPIRIN [Concomitant]
     Route: 065
  4. DARVOCET [Concomitant]
     Route: 065
  5. VICODIN [Concomitant]
     Route: 065
  6. DETROL [Concomitant]
     Route: 065
  7. PREVACID [Concomitant]
     Route: 065
  8. PROVENTIL [Concomitant]
     Route: 065
  9. SEREVENT [Concomitant]
     Route: 065
  10. FLOVENT [Concomitant]
     Route: 065
  11. COMBIVENT [Concomitant]
     Route: 065
  12. ALBUTEROL [Concomitant]
     Route: 065
  13. EVISTA [Concomitant]
     Route: 065
  14. OS-CAL [Concomitant]
     Route: 065

REACTIONS (19)
  - ACUTE MYOCARDIAL INFARCTION [None]
  - ANAEMIA [None]
  - ANGINA PECTORIS [None]
  - ASTHMA [None]
  - BRONCHITIS ACUTE [None]
  - CHEST PAIN [None]
  - CHRONIC OBSTRUCTIVE PULMONARY DISEASE [None]
  - CONSTIPATION [None]
  - CORONARY ARTERY DISEASE [None]
  - DIVERTICULITIS [None]
  - DIVERTICULUM [None]
  - EMOTIONAL DISTRESS [None]
  - GASTRIC ULCER [None]
  - HYPERGLYCAEMIA [None]
  - NON-CARDIAC CHEST PAIN [None]
  - OESOPHAGEAL STENOSIS [None]
  - OSTEOARTHRITIS [None]
  - OSTEOPENIA [None]
  - RENAL FAILURE [None]
